FAERS Safety Report 19774507 (Version 1)
Quarter: 2021Q3

REPORT INFORMATION
  Report Type: Spontaneous
  Country: US (occurrence: US)
  Receive Date: 20210901
  Receipt Date: 20210901
  Transmission Date: 20211014
  Serious: No
  Sender: FDA-Public Use
  Company Number: US-THERAPEUTICSMD-2021TMD01744

PATIENT
  Age: 24 Year
  Sex: Female
  Weight: 64.4 kg

DRUGS (4)
  1. ANNOVERA [Suspect]
     Active Substance: ETHINYL ESTRADIOL\SEGESTERONE ACETATE
     Indication: CONTRACEPTION
     Dosage: 1 RING PER 28 DAYS
     Route: 067
     Dates: start: 20210430
  2. LAMICTAL [Concomitant]
     Active Substance: LAMOTRIGINE
  3. UNSPECIFIED BETA BLOCKER [Concomitant]
     Active Substance: UNSPECIFIED INGREDIENT
  4. L?METHYLFOLATE [Concomitant]
     Active Substance: LEVOMEFOLIC ACID

REACTIONS (3)
  - Vaginal haemorrhage [Not Recovered/Not Resolved]
  - Device difficult to use [Not Recovered/Not Resolved]
  - Acne cystic [Not Recovered/Not Resolved]

NARRATIVE: CASE EVENT DATE: 202105
